FAERS Safety Report 4526098-8 (Version None)
Quarter: 2004Q4

REPORT INFORMATION
  Report Type: 
  Country: None (occurrence: None)
  Receive Date: 20041214
  Receipt Date: 20041202
  Transmission Date: 20050328
  Serious: Yes (Hospitalization)
  Sender: FDA-Public Use
  Company Number: PHBS2004CH16235

PATIENT
  Age: 53 Year
  Sex: Female

DRUGS (17)
  1. SINGULAIR [Concomitant]
     Dosage: 20 MG/D
     Route: 048
  2. PLAVIX [Concomitant]
     Dosage: 75 MG/D
     Route: 048
  3. MEVALOTIN [Concomitant]
     Dosage: 20 MG/D
  4. PANTOZOL [Concomitant]
     Dosage: 20 MG/D
     Route: 048
  5. PREDNISONE TAB [Concomitant]
     Dosage: 20 MG/D
     Route: 048
  6. FOSAMAX [Concomitant]
     Dosage: 70 MG, QW
     Route: 048
  7. CALCIMAGON-D3 [Concomitant]
     Dosage: 1 DF, QD
     Route: 048
  8. SPIRIVA [Concomitant]
     Dosage: 18 UG/D
  9. NORVASC [Concomitant]
     Dosage: 5 MG, PRN
  10. ADALAT [Concomitant]
     Dosage: 30 MG/D
     Route: 048
     Dates: start: 20041026
  11. SORTIS [Suspect]
  12. TOLVON [Suspect]
     Indication: SLEEP DISORDER
     Dosage: 30 MG/D
     Route: 048
     Dates: start: 20041010
  13. SEROPRAM [Suspect]
     Dosage: 20 MG/D
     Route: 048
  14. ZESTRIL [Suspect]
     Dosage: 20 MG/D
     Route: 048
     Dates: end: 20041029
  15. SERETIDE DISKUS [Suspect]
     Dosage: 1 MG/D
  16. UNIFYL [Suspect]
     Dosage: 600 MG/D
     Route: 048
  17. SANDIMMUNE [Suspect]
     Route: 048
     Dates: end: 20041029

REACTIONS (10)
  - DIPLOPIA [None]
  - DRUG INTERACTION [None]
  - ELECTROCARDIOGRAM QT PROLONGED [None]
  - EYELID PTOSIS [None]
  - HEMIANOPIA [None]
  - HYPERCHOLESTEROLAEMIA [None]
  - HYPERTENSION [None]
  - OVERDOSE [None]
  - RENAL IMPAIRMENT [None]
  - SEROTONIN SYNDROME [None]
